FAERS Safety Report 7700069-2 (Version None)
Quarter: 2011Q3

REPORT INFORMATION
  Report Type: 
  Country: None (occurrence: None)
  Receive Date: 20110822
  Receipt Date: 20110811
  Transmission Date: 20111222
  Serious: Yes (Death, Hospitalization)
  Sender: FDA-Public Use
  Company Number: JP-GENZYME-THYM-1002691

PATIENT
  Age: 58 Year
  Sex: Male
  Weight: 64 kg

DRUGS (11)
  1. THYMOGLOBULIN [Suspect]
     Indication: ACUTE GRAFT VERSUS HOST DISEASE
  2. BUSULFAN [Concomitant]
     Indication: BONE MARROW CONDITIONING REGIMEN
     Dosage: UNK
     Dates: start: 20101202, end: 20101205
  3. FLUDARA [Suspect]
     Indication: BONE MARROW CONDITIONING REGIMEN
     Dosage: UNK
     Dates: start: 20101130, end: 20101205
  4. METHYLPREDNISOLONE SODIUM SUCCINATE [Concomitant]
     Indication: PREMEDICATION
     Dosage: UNK
     Dates: start: 20110112, end: 20110115
  5. FILGRASTIM [Concomitant]
     Indication: MYELODYSPLASTIC SYNDROME
     Dosage: UNK
     Dates: start: 20110113, end: 20110117
  6. RED BLOOD CELLS, CONCENTRATED [Concomitant]
     Indication: MYELODYSPLASTIC SYNDROME
     Dosage: UNK
     Dates: end: 20110216
  7. PLATELETS [Concomitant]
     Indication: MYELODYSPLASTIC SYNDROME
     Dosage: UNK
     Dates: end: 20110216
  8. THYMOGLOBULIN [Suspect]
     Indication: BONE MARROW CONDITIONING REGIMEN
     Dosage: 80 MG, UNK
     Route: 042
     Dates: start: 20110112, end: 20110115
  9. ACETAMINOPHEN [Concomitant]
     Indication: PREMEDICATION
     Dosage: UNK
     Dates: start: 20110112, end: 20110115
  10. PLASMA [Concomitant]
     Indication: MYELODYSPLASTIC SYNDROME
     Dosage: UNK
     Dates: end: 20110216
  11. CHLORPHENIRAMINE MALEATE [Concomitant]
     Indication: PREMEDICATION
     Dosage: UNK
     Dates: start: 20110112, end: 20110115

REACTIONS (2)
  - CYTOMEGALOVIRUS INFECTION [None]
  - ACUTE GRAFT VERSUS HOST DISEASE [None]
